FAERS Safety Report 15829601 (Version 1)
Quarter: 2019Q1

REPORT INFORMATION
  Report Type: Spontaneous
  Country: US (occurrence: US)
  Receive Date: 20190115
  Receipt Date: 20190115
  Transmission Date: 20190417
  Serious: No
  Sender: FDA-Public Use
  Company Number: US-DEPOMED, INC.-US-2018DEP000068

PATIENT

DRUGS (5)
  1. TRAZODONE [Concomitant]
     Active Substance: TRAZODONE HYDROCHLORIDE
     Indication: INSOMNIA
     Dosage: 150 MG, BID
     Route: 048
     Dates: start: 2017
  2. NUCYNTA [Suspect]
     Active Substance: TAPENTADOL HYDROCHLORIDE
     Indication: PAIN
     Dosage: 100 MG, BID
     Route: 048
     Dates: end: 20180108
  3. IBUPROFEN. [Concomitant]
     Active Substance: IBUPROFEN
     Indication: SWELLING
     Dosage: 800 MG, BID
     Route: 048
     Dates: start: 2010
  4. SOMA [Concomitant]
     Active Substance: CARISOPRODOL
     Indication: MUSCLE SPASMS
     Dosage: 350 MG, BID
     Route: 048
     Dates: start: 2010
  5. OXYCODONE [Concomitant]
     Active Substance: OXYCODONE
     Indication: PAIN
     Dosage: 15 MG, BID
     Route: 048

REACTIONS (2)
  - Drug dose titration not performed [Unknown]
  - Product distribution issue [Unknown]

NARRATIVE: CASE EVENT DATE: 20180108
